FAERS Safety Report 18332612 (Version 2)
Quarter: 2020Q4

REPORT INFORMATION
  Report Type: Spontaneous
  Country: US (occurrence: US)
  Receive Date: 20200930
  Receipt Date: 20201103
  Transmission Date: 20210113
  Serious: Yes (Other)
  Sender: FDA-Public Use
  Company Number: US-GE HEALTHCARE LIFE SCIENCES-2020CSU004767

PATIENT
  Age: 59 Year
  Sex: Female
  Weight: 78.01 kg

DRUGS (33)
  1. SUBUTEX [Concomitant]
     Active Substance: BUPRENORPHINE HYDROCHLORIDE
     Dosage: PLACE 2 MG UNDER THE TONGUE 2 TIMES DAILY AS NEEDED (PATIENT TAKES PARTIAL PILL FOR EACH DOSE)
     Route: 060
  2. WELLBUTRIN XL [Concomitant]
     Active Substance: BUPROPION HYDROCHLORIDE
     Dosage: 1 TABLET (300 MG) BY MOUTH EVERY MORNING
     Route: 048
     Dates: start: 20191031
  3. VITAMIN D3 [Concomitant]
     Active Substance: CHOLECALCIFEROL
     Dosage: 2000 UNITS BY MOUTH DAILY
     Route: 048
     Dates: start: 20191031
  4. LEXAPRO [Concomitant]
     Active Substance: ESCITALOPRAM OXALATE
     Dosage: 1 TABLET (20 MG) BY MOUTH DAILY
     Route: 048
     Dates: start: 20191031
  5. FLONASE [Concomitant]
     Active Substance: FLUTICASONE PROPIONATE
     Dosage: 50 MCG/ACT, 1-2 SPRAYS INTO BOTH NOSTRILS DAILY
     Route: 045
     Dates: start: 20200805
  6. MAGNESIUM [Concomitant]
     Active Substance: MAGNESIUM
     Dosage: 1 TABLET BY MOUTH DAILY
     Route: 048
  7. ZOFRAN [Concomitant]
     Active Substance: ONDANSETRON HYDROCHLORIDE
     Indication: NAUSEA
     Dosage: 1 TABLET (4 MG) BY MOUTH EVERY 8 HOURS AS NEEDED FOR NAUSEA
     Route: 048
     Dates: start: 20191031
  8. PROTONIX [Concomitant]
     Active Substance: PANTOPRAZOLE SODIUM
     Dosage: 1 TABLET (40 MG) BY MOUTH EVERY 12 HOURS
     Route: 048
     Dates: start: 20191031
  9. CELEBREX [Concomitant]
     Active Substance: CELECOXIB
     Dosage: 1 CAPSULE (200 MG) BY MOUTH DAILY
     Route: 048
     Dates: start: 20191031
  10. COENZYME Q10 [Concomitant]
     Active Substance: DIETARY SUPPLEMENT\UBIDECARENONE
     Dosage: 100-200 MG BY MOUTH DAILY
     Route: 048
     Dates: start: 20101011
  11. CHRONULAC [Concomitant]
     Active Substance: LACTULOSE
     Indication: CONSTIPATION
     Dosage: 10 GM/ 15ML, TAKE 30 MLS (20G) BY MOUTH 2 TIMES DAILY AS NEEDED FOR CONSTIPATION
     Route: 048
     Dates: start: 20191031
  12. TESTOSTERONE. [Concomitant]
     Active Substance: TESTOSTERONE
     Dosage: APPLY TOPICALLY EVERY MORNING TESTOSTERONE 1% IN HRT BASE APPLY 0.25 GRAMS ONCE DAILY EVERY MORNING
     Route: 061
     Dates: start: 20180615
  13. ARMOUR THYROID [Concomitant]
     Active Substance: THYROID, PORCINE
     Dosage: TAKE ONE AND ONE-HALF TABLETS BY MOTH ONCE DAILY
     Route: 048
     Dates: start: 20191019
  14. SENOKOT-S [Concomitant]
     Active Substance: DOCUSATE SODIUM\SENNOSIDES
     Indication: CONSTIPATION
     Dosage: TAKE 1 TABLET BY MOUTH DAILY AS NEEDED FOR CONSTIPATION
     Route: 048
  15. IMITREX [Concomitant]
     Active Substance: SUMATRIPTAN SUCCINATE
     Indication: MIGRAINE
  16. AMBIEN [Concomitant]
     Active Substance: ZOLPIDEM TARTRATE
     Indication: SLEEP DISORDER
     Dosage: TAKE 5-10 MG BY MOUTH NIGHTLY AS NEEDED FOR SLEEP
     Route: 048
  17. OPTISON [Suspect]
     Active Substance: ALBUMIN HUMAN
     Indication: ECHOCARDIOGRAM
     Dosage: 4 ML DILUTED (3 ML OPTISON MIXED 6 ML SALINE)
     Route: 042
     Dates: start: 20200908, end: 20200908
  18. SODIUM CHLORIDE. [Concomitant]
     Active Substance: SODIUM CHLORIDE
     Dosage: 10 ML
     Route: 042
     Dates: start: 20200908, end: 20200908
  19. VOSOL [ACETIC ACID] [Concomitant]
     Dosage: PLACE 4 DROPS INTO BOTH EARS 4 TIMES DAILY AS NEEDED- BOTH EARS
     Dates: start: 20170810
  20. ZOVIRAX [Concomitant]
     Active Substance: ACYCLOVIR
     Dosage: TOPICALLY 6 TIMES DAILY AS NEEDED
  21. ESTRACE [Concomitant]
     Active Substance: ESTRADIOL
     Dosage: PLACE 2 G VAGINALLY TWICE A WEEK
     Route: 067
     Dates: start: 20191031
  22. IMITREX [Concomitant]
     Active Substance: SUMATRIPTAN SUCCINATE
     Indication: HEADACHE
     Dosage: 1 TAB-100 MG AT HEADACHE ONSET. FOR MIGRANE MAY REPEAT DOSE IN 2 HRS. DO NOT EXCEED 200 MG IN 24 HRS
     Route: 048
     Dates: start: 20191223
  23. OPTISON [Suspect]
     Active Substance: ALBUMIN HUMAN
     Indication: DYSPNOEA
  24. LIDODERM [Concomitant]
     Active Substance: LIDOCAINE
     Dosage: APPLY UP TO 3 PATCHES TO PAINFUL AREA AT ONCE FOR UP TO 12 H WITHIN 24 H PERIOD. REMOVE AFTER 12 H
     Route: 061
     Dates: start: 20200630
  25. ROBAXIN [Concomitant]
     Active Substance: METHOCARBAMOL
     Indication: MUSCLE SPASMS
     Dosage: 1.5 TABLETS (750 MG) BY MOUTH 4 TIMES DAILY AS NEEDED
     Route: 048
     Dates: start: 20191031
  26. TESTOSTERONE. [Concomitant]
     Active Substance: TESTOSTERONE
     Dosage: 10MG/GM CREAM, 0.2 MLS USE DAILY AS NEEDED
     Route: 061
  27. ATIVAN [Concomitant]
     Active Substance: LORAZEPAM
     Indication: ANXIETY
     Dosage: TAKE ONE TABLET 30 MINUTES PRIOR TO MEDICAL PROCEDURE
     Dates: start: 20200908
  28. AMITIZA [Concomitant]
     Active Substance: LUBIPROSTONE
     Dosage: TAKE 1 CAPSULE (24 MCG) BY MOUTH 2 TIMES DAILY (WITH MEALS)
     Route: 048
     Dates: start: 20170928
  29. MEDIPLAST [Concomitant]
     Active Substance: SALICYLIC ACID
     Indication: SKIN PAPILLOMA
     Dosage: SCRAPE OR LOOFA WART AND SOAK FOOT FOR 10 MIN IN WARM H2O Q PM. TAPE PLASTER OVERNIGHT, REMOVE IN AM
     Route: 061
     Dates: start: 20150716
  30. QUILL [Concomitant]
     Active Substance: NITRAZEPAM
  31. DIPHENHYDRAMINE HCL [Concomitant]
     Active Substance: DIPHENHYDRAMINE HYDROCHLORIDE
     Dosage: 25 MG
     Route: 042
     Dates: start: 20200908, end: 20200908
  32. VOLTAREN [DICLOFENAC DIETHYLAMINE] [Concomitant]
     Active Substance: DICLOFENAC DIETHYLAMINE
     Dosage: PLACE 2-4 G ONTO THE SKIN 4 TIMES DAILY
     Route: 062
     Dates: start: 20200102
  33. XYLOCAINE [Concomitant]
     Active Substance: LIDOCAINE HYDROCHLORIDE
     Dosage: APPLY 1 ML (1 TUBE) TOPICALLY AS NEEDED
     Route: 061
     Dates: start: 20200630

REACTIONS (2)
  - Dysphagia [Recovered/Resolved]
  - Swollen tongue [Recovered/Resolved]

NARRATIVE: CASE EVENT DATE: 20200908
